FAERS Safety Report 22035681 (Version 3)
Quarter: 2023Q2

REPORT INFORMATION
  Report Type: Spontaneous
  Country: IT (occurrence: IT)
  Receive Date: 20230224
  Receipt Date: 20230424
  Transmission Date: 20230721
  Serious: Yes (Other)
  Sender: FDA-Public Use
  Company Number: IT-ROCHE-3247450

PATIENT
  Age: 44 Year
  Sex: Male

DRUGS (14)
  1. LENALIDOMIDE [Interacting]
     Active Substance: LENALIDOMIDE
     Indication: Marginal zone lymphoma
     Dosage: UNK
     Route: 065
  2. LENALIDOMIDE [Interacting]
     Active Substance: LENALIDOMIDE
     Indication: B-cell lymphoma
  3. RITUXIMAB [Interacting]
     Active Substance: RITUXIMAB
     Indication: Marginal zone lymphoma
     Dosage: UNK
     Route: 065
  4. RITUXIMAB [Interacting]
     Active Substance: RITUXIMAB
     Indication: B-cell lymphoma
  5. RITUXIMAB [Interacting]
     Active Substance: RITUXIMAB
     Indication: B-cell lymphoma stage IV
  6. IMBRUVICA [Interacting]
     Active Substance: IBRUTINIB
     Indication: Marginal zone lymphoma
     Dosage: UNK
     Route: 048
  7. IMBRUVICA [Interacting]
     Active Substance: IBRUTINIB
     Indication: B-cell lymphoma
     Dosage: UNK
     Route: 065
  8. POLATUZUMAB VEDOTIN [Interacting]
     Active Substance: POLATUZUMAB VEDOTIN
     Indication: Marginal zone lymphoma
     Dosage: UNK
     Route: 065
  9. POLATUZUMAB VEDOTIN [Interacting]
     Active Substance: POLATUZUMAB VEDOTIN
     Indication: B-cell lymphoma
  10. IBRUTINIB [Interacting]
     Active Substance: IBRUTINIB
     Indication: Marginal zone lymphoma
     Dosage: UNK
     Route: 065
  11. IBRUTINIB [Interacting]
     Active Substance: IBRUTINIB
     Indication: B-cell lymphoma
  12. DEXAMETHASONE [Concomitant]
     Active Substance: DEXAMETHASONE
     Dosage: UNK
     Route: 065
  13. CYCLOSPORINE [Concomitant]
     Active Substance: CYCLOSPORINE
     Dosage: UNK
     Route: 065
  14. TOCILIZUMAB [Concomitant]
     Active Substance: TOCILIZUMAB
     Dosage: UNK
     Route: 065

REACTIONS (6)
  - Neutropenia [Unknown]
  - Thrombocytopenia [Unknown]
  - Anaemia [Not Recovered/Not Resolved]
  - Therapy partial responder [Unknown]
  - Drug ineffective [Unknown]
  - Drug interaction [Unknown]
